FAERS Safety Report 7113727-8 (Version None)
Quarter: 2010Q4

REPORT INFORMATION
  Report Type: 
  Country: None (occurrence: None)
  Receive Date: 20101119
  Receipt Date: 20101109
  Transmission Date: 20110411
  Serious: Yes (Death)
  Sender: FDA-Public Use
  Company Number: US-WATSON-2010-14865

PATIENT
  Age: 71 Year
  Sex: Female

DRUGS (2)
  1. VERAPAMIL HCL [Suspect]
     Indication: HYPERTENSION
     Dosage: 80 MG, TID
  2. ATORVASTATIN [Suspect]
     Indication: HYPERLIPIDAEMIA
     Dosage: 10-20 MG, DAILY

REACTIONS (2)
  - DRUG INTERACTION [None]
  - MULTI-ORGAN FAILURE [None]
